FAERS Safety Report 12257721 (Version 2)
Quarter: 2016Q2

REPORT INFORMATION
  Report Type: Spontaneous
  Country: CH (occurrence: CH)
  Receive Date: 20160412
  Receipt Date: 20160608
  Transmission Date: 20160815
  Serious: Yes (Hospitalization)
  Sender: FDA-Public Use
  Company Number: ALCN2016CH002528

PATIENT

DRUGS (5)
  1. ULTRACORTENOL [Interacting]
     Active Substance: PREDNISOLONE ACETATE
     Indication: AUTOIMMUNE UVEITIS
     Dosage: 1 DF, QD
     Route: 047
     Dates: start: 20160223, end: 20160304
  2. MAXIDEX [Interacting]
     Active Substance: DEXAMETHASONE
     Dosage: 1 GTT, BID
     Route: 047
     Dates: start: 20160314, end: 20160318
  3. PRED FORTE [Interacting]
     Active Substance: PREDNISOLONE ACETATE
     Indication: AUTOIMMUNE UVEITIS
     Dosage: 1 GTT, QH
     Route: 047
     Dates: start: 20160223, end: 20160313
  4. MAXIDEX [Suspect]
     Active Substance: DEXAMETHASONE
     Indication: AUTOIMMUNE UVEITIS
     Dosage: 1 GTT, TID
     Route: 047
     Dates: start: 20160313, end: 20160313
  5. SCOPOLAMINE HBR [Interacting]
     Active Substance: SCOPOLAMINE
     Indication: AUTOIMMUNE UVEITIS
     Dosage: 1 GTT, BID
     Route: 047
     Dates: start: 20160223, end: 201603

REACTIONS (3)
  - Acute psychosis [Recovered/Resolved]
  - Psychotic disorder [Recovering/Resolving]
  - Mania [Recovered/Resolved]

NARRATIVE: CASE EVENT DATE: 20160306
